FAERS Safety Report 5213280-X (Version None)
Quarter: 2007Q1

REPORT INFORMATION
  Report Type: 
  Country: None (occurrence: None)
  Receive Date: 20070119
  Receipt Date: 20070112
  Transmission Date: 20070707
  Serious: Yes (Hospitalization)
  Sender: FDA-Public Use
  Company Number: GB-BAXTER-2007BH000435

PATIENT
  Age: 58 Year
  Sex: Female

DRUGS (16)
  1. EXTRANEAL [Suspect]
     Indication: FLUID OVERLOAD
     Route: 033
     Dates: start: 20040301
  2. CARBAMAZEPINE [Concomitant]
  3. OLANZAPINE [Concomitant]
  4. LAMOTRIGINE [Concomitant]
  5. DULOXETINE [Concomitant]
  6. HYDROXYZINE [Concomitant]
  7. FUROSEMIDE [Concomitant]
  8. RENAGEL [Concomitant]
  9. ATORVASTATIN CALCIUM [Concomitant]
  10. ASPIRIN [Concomitant]
  11. PREMPAK C [Concomitant]
  12. ARANESP [Concomitant]
     Route: 058
  13. SENNA [Concomitant]
     Dosage: DOSE UNIT:UNKNOWN
  14. LACTULOSE [Concomitant]
  15. INSULIN MIXTARD [Concomitant]
     Dosage: DOSE UNIT:UNKNOWN
     Route: 058
  16. DIANEAL [Concomitant]
     Indication: FLUID OVERLOAD
     Route: 033
     Dates: start: 20040301

REACTIONS (2)
  - PERITONEAL HAEMORRHAGE [None]
  - PERITONITIS [None]
